FAERS Safety Report 16378761 (Version 6)
Quarter: 2019Q3

REPORT INFORMATION
  Report Type: Report from Study
  Country: US (occurrence: US)
  Receive Date: 20190531
  Receipt Date: 20190814
  Transmission Date: 20191004
  Serious: Yes (Hospitalization, Other)
  Sender: FDA-Public Use
  Company Number: US-GILEAD-2019-0410922

PATIENT
  Age: 30 Year
  Sex: Female
  Weight: 64.9 kg

DRUGS (22)
  1. AMBRISENTAN [Suspect]
     Active Substance: AMBRISENTAN
     Indication: MIXED CONNECTIVE TISSUE DISEASE
     Dosage: 10 MG, QD
     Route: 065
     Dates: start: 20190513
  2. PANTOPRAZOLE [Concomitant]
     Active Substance: PANTOPRAZOLE
  3. TRAMADOL. [Concomitant]
     Active Substance: TRAMADOL
  4. ACETAMINOPHEN. [Concomitant]
     Active Substance: ACETAMINOPHEN
  5. IBUPROFEN. [Concomitant]
     Active Substance: IBUPROFEN
  6. ADEMPAS [Suspect]
     Active Substance: RIOCIGUAT
     Indication: PULMONARY HYPERTENSION
     Dosage: 2 MG, TID
     Route: 065
     Dates: start: 20190409
  7. DULOXETINE. [Concomitant]
     Active Substance: DULOXETINE
  8. LIDOCAINE. [Concomitant]
     Active Substance: LIDOCAINE
  9. POLYETHYLENE GLYCOL [Concomitant]
     Active Substance: POLYETHYLENE GLYCOLS
  10. HYDROXYCHLOROQUINE [Concomitant]
     Active Substance: HYDROXYCHLOROQUINE
  11. RIOCIGUAT. [Concomitant]
     Active Substance: RIOCIGUAT
  12. HEPARIN [Concomitant]
     Active Substance: HEPARIN SODIUM
  13. SENNA ACUTIFOLIA [Concomitant]
  14. AMBRISENTAN [Suspect]
     Active Substance: AMBRISENTAN
     Indication: PULMONARY HYPERTENSION
     Dosage: 5 MG, QD
     Route: 048
     Dates: start: 20190509
  15. RITUXIMAB. [Concomitant]
     Active Substance: RITUXIMAB
  16. GABAPENTIN. [Concomitant]
     Active Substance: GABAPENTIN
  17. SPIRONOLACTONE. [Concomitant]
     Active Substance: SPIRONOLACTONE
  18. AMBRISENTAN [Suspect]
     Active Substance: AMBRISENTAN
     Indication: SYSTEMIC LUPUS ERYTHEMATOSUS
     Dosage: 5 MG, QD
     Route: 048
  19. LASIX [Concomitant]
     Active Substance: FUROSEMIDE
  20. DOCUSATE [Concomitant]
     Active Substance: DOCUSATE
  21. PREDNISONE. [Concomitant]
     Active Substance: PREDNISONE
  22. CHOLECALCIFEROL [Concomitant]
     Active Substance: CHOLECALCIFEROL

REACTIONS (5)
  - Treatment noncompliance [Recovered/Resolved]
  - Drug ineffective [Not Recovered/Not Resolved]
  - Fluid overload [Recovered/Resolved]
  - Dyspnoea exertional [Not Recovered/Not Resolved]
  - Cellulitis [Not Recovered/Not Resolved]

NARRATIVE: CASE EVENT DATE: 201905
